FAERS Safety Report 25163424 (Version 3)
Quarter: 2025Q2

REPORT INFORMATION
  Report Type: Report from Study
  Country: CA (occurrence: CA)
  Receive Date: 20250404
  Receipt Date: 20250502
  Transmission Date: 20250716
  Serious: Yes (Hospitalization)
  Sender: ABBVIE
  Company Number: CA-ABBVIE-6053138

PATIENT
  Age: 74 Year
  Sex: Male

DRUGS (2)
  1. VYALEV [Suspect]
     Active Substance: FOSCARBIDOPA\FOSLEVODOPA
     Indication: Parkinson^s disease
     Route: 058
     Dates: start: 20241203
  2. VYALEV [Suspect]
     Active Substance: FOSCARBIDOPA\FOSLEVODOPA
     Route: 058

REACTIONS (14)
  - Device dislocation [Unknown]
  - Device occlusion [Recovered/Resolved]
  - Drug interaction [Unknown]
  - Intercepted product selection error [Unknown]
  - Rash erythematous [Unknown]
  - Infusion site discharge [Unknown]
  - Fear [Unknown]
  - Rash [Recovered/Resolved]
  - Device difficult to use [Unknown]
  - Device dislocation [Unknown]
  - Sepsis [Unknown]
  - Sleep deficit [Unknown]
  - Confusional state [Unknown]
  - Device issue [Unknown]

NARRATIVE: CASE EVENT DATE: 20241201
